FAERS Safety Report 17388618 (Version 2)
Quarter: 2024Q1

REPORT INFORMATION
  Report Type: Spontaneous
  Country: US (occurrence: US)
  Receive Date: 20200207
  Receipt Date: 20240125
  Transmission Date: 20240410
  Serious: No
  Sender: FDA-Public Use
  Company Number: US-PFIZER INC-2020055240

PATIENT
  Age: 74 Year
  Sex: Female

DRUGS (28)
  1. XELJANZ XR [Suspect]
     Active Substance: TOFACITINIB CITRATE
     Dosage: 11 MG
  2. TYLENOL [Concomitant]
     Active Substance: ACETAMINOPHEN
  3. ALBUTEROL [Concomitant]
     Active Substance: ALBUTEROL
  4. XANAX [Concomitant]
     Active Substance: ALPRAZOLAM
  5. ELIQUIS [Concomitant]
     Active Substance: APIXABAN
  6. ZYRTEC [Concomitant]
     Active Substance: CETIRIZINE HYDROCHLORIDE
  7. CYMBALTA [Concomitant]
     Active Substance: DULOXETINE HYDROCHLORIDE
  8. FERROUS SULFATE [Concomitant]
     Active Substance: FERROUS SULFATE
  9. NEURONTIN [Concomitant]
     Active Substance: GABAPENTIN
  10. GLUCOTROL [Concomitant]
     Active Substance: GLIPIZIDE
  11. BONIVA [Concomitant]
     Active Substance: IBANDRONATE SODIUM
  12. PREVACID [Concomitant]
     Active Substance: LANSOPRAZOLE
  13. LISINOPRIL [Concomitant]
     Active Substance: LISINOPRIL
  14. MAGNESIUM [Concomitant]
     Active Substance: MAGNESIUM
  15. MELATONIN [Concomitant]
     Active Substance: MELATONIN
  16. METFORMIN [Concomitant]
     Active Substance: METFORMIN HYDROCHLORIDE
  17. TOPROL XL [Concomitant]
     Active Substance: METOPROLOL SUCCINATE
  18. LOPRESSOR [Concomitant]
     Active Substance: METOPROLOL TARTRATE
  19. PROAMATINE [Concomitant]
     Active Substance: MIDODRINE HYDROCHLORIDE
  20. SINGULAIR [Concomitant]
     Active Substance: MONTELUKAST SODIUM
  21. VITAMINS NOS [Concomitant]
     Active Substance: VITAMINS
  22. OMEPRAZOLE [Concomitant]
     Active Substance: OMEPRAZOLE
  23. PAXIL [Concomitant]
     Active Substance: PAROXETINE HYDROCHLORIDE
  24. ROZEREM [Concomitant]
     Active Substance: RAMELTEON
  25. CRESTOR [Concomitant]
     Active Substance: ROSUVASTATIN CALCIUM
  26. SULFASALAZINE [Concomitant]
     Active Substance: SULFASALAZINE
  27. ZANAFLEX [Concomitant]
     Active Substance: TIZANIDINE HYDROCHLORIDE
  28. VALTREX [Concomitant]
     Active Substance: VALACYCLOVIR HYDROCHLORIDE

REACTIONS (1)
  - Confusional state [Unknown]
